FAERS Safety Report 7025402-9 (Version None)
Quarter: 2010Q4

REPORT INFORMATION
  Report Type: 
  Country: None (occurrence: None)
  Receive Date: 20101001
  Receipt Date: 20100923
  Transmission Date: 20110411
  Serious: Yes (Hospitalization, Other)
  Sender: FDA-Public Use
  Company Number: PHHO2010US08307

PATIENT
  Sex: Male
  Weight: 116 kg

DRUGS (17)
  1. BLINDED ALISKIREN ALI+TAB+CF [Suspect]
     Dosage: DOUBLE BLIND
     Route: 048
     Dates: start: 20090703
  2. ENALAPRIL MALEATE [Suspect]
     Dosage: DOUBLE BLIND
     Route: 048
     Dates: start: 20090703
  3. BLINDED NO TREATMENT RECEIVED NOMED [Suspect]
     Dosage: DOUBLE BLIND
     Route: 048
     Dates: start: 20090703
  4. COMPARATOR ENALAPRIL [Suspect]
     Indication: CARDIAC FAILURE
     Dosage: UNK
     Dates: start: 20090526
  5. ALISKIREN [Suspect]
     Indication: CARDIAC FAILURE
     Dosage: UNK
     Dates: start: 20090703
  6. ASPIRIN [Concomitant]
  7. CLOPIDOGREL [Concomitant]
  8. SIMVASTATIN [Concomitant]
     Indication: HYPERLIPIDAEMIA
  9. METOPROLOL TARTRATE [Concomitant]
     Indication: HYPERTENSION
  10. TRIAMTERENE AND HYDROCHLOROTHIAZID [Concomitant]
  11. OMEPRAZOLE [Concomitant]
     Indication: GASTROOESOPHAGEAL REFLUX DISEASE
  12. ALLOPURINOL [Concomitant]
  13. GLUCOSAMINE [Concomitant]
  14. DIPHENHYDRAMINE [Concomitant]
  15. FUROSEMIDE [Concomitant]
     Indication: CARDIAC FAILURE CONGESTIVE
  16. BENAZEPRIL HYDROCHLORIDE [Concomitant]
  17. HYDROCODONE [Concomitant]
     Indication: BACK PAIN

REACTIONS (17)
  - ABDOMINAL PAIN [None]
  - ASTHENIA [None]
  - CARDIAC FAILURE CONGESTIVE [None]
  - CONCOMITANT DISEASE PROGRESSION [None]
  - DECREASED APPETITE [None]
  - DEHYDRATION [None]
  - DIARRHOEA [None]
  - DISEASE PROGRESSION [None]
  - DIZZINESS [None]
  - DYSPNOEA [None]
  - FATIGUE [None]
  - GASTROENTERITIS VIRAL [None]
  - GASTROINTESTINAL DISORDER [None]
  - HYPOCALCAEMIA [None]
  - HYPOKALAEMIA [None]
  - HYPOMAGNESAEMIA [None]
  - RESPIRATORY ACIDOSIS [None]
